FAERS Safety Report 5812870-0 (Version None)
Quarter: 2008Q3

REPORT INFORMATION
  Report Type: 
  Country: None (occurrence: None)
  Receive Date: 20080715
  Receipt Date: 20080715
  Transmission Date: 20090109
  Serious: Yes (Death, Hospitalization, Other)
  Sender: FDA-Public Use
  Company Number: None

PATIENT
  Age: 19 Year
  Sex: Female
  Weight: 46 kg

DRUGS (7)
  1. CISPLATIN [Suspect]
     Indication: NASOPHARYNGEAL CANCER
     Dosage: 116 MG CYC IV
     Route: 042
     Dates: start: 20080612, end: 20080612
  2. FLUOROURACIL [Suspect]
     Indication: NASOPHARYNGEAL CANCER
     Dosage: 1450 TOTAL DOSE MG CYC IV
     Route: 042
     Dates: start: 20080612, end: 20080616
  3. ACETAMINOPHEN W/ CODEINE [Concomitant]
  4. ONDANSETRON [Concomitant]
  5. DEXTROSE 5% [Concomitant]
  6. MANNITOL [Concomitant]
  7. POTASSIUM CHLORIDE [Concomitant]

REACTIONS (15)
  - ABDOMINAL TENDERNESS [None]
  - APLASIA [None]
  - BLOOD PRESSURE DECREASED [None]
  - BLOOD PRESSURE DIASTOLIC DECREASED [None]
  - DYSPNOEA [None]
  - GENERAL PHYSICAL HEALTH DETERIORATION [None]
  - GLASGOW COMA SCALE ABNORMAL [None]
  - HEART RATE INCREASED [None]
  - PHARYNGEAL ABSCESS [None]
  - PHARYNGEAL ERYTHEMA [None]
  - PYREXIA [None]
  - RESPIRATORY DISTRESS [None]
  - SEPTIC SHOCK [None]
  - TACHYPNOEA [None]
  - TONGUE ULCERATION [None]
